APPROVED DRUG PRODUCT: POLARAMINE
Active Ingredient: DEXCHLORPHENIRAMINE MALEATE
Strength: 2MG/5ML
Dosage Form/Route: SYRUP;ORAL
Application: A086837 | Product #001
Applicant: SCHERING CORP SUB SCHERING PLOUGH CORP
Approved: Jul 19, 1982 | RLD: No | RS: No | Type: DISCN